FAERS Safety Report 9160066 (Version 2)
Quarter: 2013Q1

REPORT INFORMATION
  Report Type: Spontaneous
  Country: US (occurrence: US)
  Receive Date: 20130313
  Receipt Date: 20130325
  Transmission Date: 20140127
  Serious: No
  Sender: FDA-Public Use
  Company Number: US-BAYER-2013-030520

PATIENT
  Age: 32 Year
  Sex: Female

DRUGS (2)
  1. MIRENA [Suspect]
     Indication: CONTRACEPTION
     Dosage: 20 MCG/24HR, CONT
     Route: 015
     Dates: start: 201201, end: 20130308
  2. MIRENA [Suspect]
     Indication: MENORRHAGIA

REACTIONS (6)
  - Menorrhagia [None]
  - Abdominal pain lower [None]
  - Acne [None]
  - Abdominal distension [None]
  - Abdominal distension [None]
  - Pelvic pain [None]
